FAERS Safety Report 5229173-8 (Version None)
Quarter: 2007Q1

REPORT INFORMATION
  Report Type: 
  Country: None (occurrence: None)
  Receive Date: 20061201
  Receipt Date: 20060925
  Transmission Date: 20070707
  Serious: No
  Sender: FDA-Public Use
  Company Number: US200609006408

PATIENT
  Age: 59 Year
  Sex: Male

DRUGS (5)
  1. CYMBALTA [Suspect]
     Indication: BACK PAIN
     Dosage: 30 MG, ORAL
     Route: 048
     Dates: start: 20060901, end: 20060901
  2. CYMBALTA [Suspect]
     Indication: BACK PAIN
     Dosage: 30 MG, ORAL
     Route: 048
     Dates: start: 20060901
  3. SYNTHROID [Concomitant]
  4. TOPROL-XL [Concomitant]
  5. CRESTOR [Concomitant]

REACTIONS (7)
  - DEHYDRATION [None]
  - EAR DISCOMFORT [None]
  - FEELING HOT [None]
  - HYPERHIDROSIS [None]
  - IRRITABILITY [None]
  - NAUSEA [None]
  - VOMITING [None]
